FAERS Safety Report 6478004-7 (Version None)
Quarter: 2009Q4

REPORT INFORMATION
  Report Type: 
  Country: None (occurrence: None)
  Receive Date: 20091207
  Receipt Date: 20091130
  Transmission Date: 20100525
  Serious: Yes (Hospitalization)
  Sender: FDA-Public Use
  Company Number: B0610252A

PATIENT
  Age: 83 Year
  Sex: Female

DRUGS (2)
  1. VALTREX [Suspect]
     Indication: HERPES ZOSTER
     Dosage: 1000MG THREE TIMES PER DAY
     Route: 048
     Dates: start: 20091125, end: 20091126
  2. ZOVIRAX [Concomitant]
     Indication: DRUG USE FOR UNKNOWN INDICATION
     Dosage: 1600MG PER DAY
     Dates: start: 20091124, end: 20091124

REACTIONS (2)
  - NERVOUS SYSTEM DISORDER [None]
  - RENAL FAILURE ACUTE [None]
